FAERS Safety Report 4824772-7 (Version None)
Quarter: 2005Q4

REPORT INFORMATION
  Report Type: 
  Country: None (occurrence: None)
  Receive Date: 20051108
  Receipt Date: 20051027
  Transmission Date: 20060501
  Serious: No
  Sender: FDA-Public Use
  Company Number: GBS051018932

PATIENT
  Age: 43 Year
  Sex: Male

DRUGS (3)
  1. ZYPREXA [Suspect]
     Indication: BIPOLAR DISORDER
     Dosage: 20 MG
     Dates: start: 20051011, end: 20051026
  2. LITHIUM [Concomitant]
  3. PENICILLIN (PHENOXYMETHYLPENICILLIN BENZATHINE) [Concomitant]

REACTIONS (2)
  - HAEMOGLOBIN DECREASED [None]
  - RED BLOOD CELL COUNT INCREASED [None]
